FAERS Safety Report 4693807-7 (Version None)
Quarter: 2005Q2

REPORT INFORMATION
  Report Type: 
  Country: None (occurrence: None)
  Receive Date: 20050616
  Receipt Date: 20050601
  Transmission Date: 20051028
  Serious: Yes (Hospitalization)
  Sender: FDA-Public Use
  Company Number: 213959

PATIENT
  Age: 60 Year
  Sex: Female

DRUGS (5)
  1. AVASTIN [Suspect]
     Indication: COLON CANCER
     Dosage: 300 MG, INTRAVENOUS
     Route: 042
     Dates: start: 20041013
  2. IRINOTECAN (IRINOTECAN HYDROCHLORIDE) [Suspect]
     Indication: COLON CANCER
  3. FLUOROURACIL [Suspect]
     Indication: COLON CANCER
  4. ATENOLOL [Concomitant]
  5. REPAGLINIDE (REPAGLINIDE) [Concomitant]

REACTIONS (4)
  - APPENDICITIS [None]
  - CAECITIS [None]
  - CARCINOID TUMOUR OF THE APPENDIX [None]
  - GASTROINTESTINAL INFECTION [None]
